FAERS Safety Report 5765891-0 (Version None)
Quarter: 2008Q2

REPORT INFORMATION
  Report Type: 
  Country: None (occurrence: None)
  Receive Date: 20080611
  Receipt Date: 20080530
  Transmission Date: 20081010
  Serious: Yes (Other)
  Sender: FDA-Public Use
  Company Number: IE-PFIZER INC-2008034557

PATIENT
  Sex: Male

DRUGS (7)
  1. CARDURA [Suspect]
     Indication: HYPERTENSION
     Route: 048
  2. ELTROXIN [Concomitant]
     Route: 048
  3. LIPITOR [Concomitant]
     Route: 048
  4. DILTIAZEM [Concomitant]
     Route: 048
  5. ASPIRIN [Concomitant]
     Route: 048
  6. RAMIPRIL [Concomitant]
     Route: 048
  7. INSULIN [Concomitant]

REACTIONS (2)
  - MALABSORPTION [None]
  - MEDICATION RESIDUE [None]
